FAERS Safety Report 8955933 (Version 1)
Quarter: 2012Q4

REPORT INFORMATION
  Report Type: 
  Country: DE (occurrence: DE)
  Receive Date: 20121210
  Receipt Date: 20121210
  Transmission Date: 20130627
  Serious: Yes (Other)
  Sender: FDA-Public Use
  Company Number: DE-SANOFI-AVENTIS-2012SA086153

PATIENT
  Age: 76 Year
  Sex: Female
  Weight: 52 kg

DRUGS (14)
  1. ARAVA [Suspect]
     Indication: RHEUMATOID ARTHRITIS
     Route: 048
     Dates: start: 2005
  2. ATENOLOL [Concomitant]
  3. AMINEURIN [Concomitant]
  4. DULCOLAX [Concomitant]
  5. DURADIURET [Concomitant]
  6. FOLSAN [Concomitant]
  7. L-THYROXIN [Concomitant]
  8. MELPERONE [Concomitant]
  9. AMITRIPTYLINE HYDROCHLORIDE [Concomitant]
  10. DELIX [Concomitant]
  11. RISPERIDONE [Concomitant]
  12. FERROUS SULFATE [Concomitant]
  13. FENTANYL [Concomitant]
  14. REQUIP [Concomitant]

REACTIONS (2)
  - Porphyria [Not Recovered/Not Resolved]
  - Chromaturia [Not Recovered/Not Resolved]
